FAERS Safety Report 5220800-8 (Version None)
Quarter: 2007Q1

REPORT INFORMATION
  Report Type: 
  Country: None (occurrence: None)
  Receive Date: 20070126
  Receipt Date: 20070116
  Transmission Date: 20070707
  Serious: Yes (Other)
  Sender: FDA-Public Use
  Company Number: PHNR2006AU00732

PATIENT
  Age: 72 Year
  Sex: Female

DRUGS (2)
  1. ZOMETA [Suspect]
     Dosage: ANNUAL DOSES
     Dates: start: 20020101
  2. STEROIDS NOS [Concomitant]

REACTIONS (7)
  - DRY EYE [None]
  - GINGIVAL PAIN [None]
  - IMPAIRED HEALING [None]
  - ORAL MUCOSAL BLISTERING [None]
  - OSTEONECROSIS [None]
  - TOOTH DISORDER [None]
  - TOOTH EXTRACTION [None]
